FAERS Safety Report 20628541 (Version 1)
Quarter: 2022Q1

REPORT INFORMATION
  Report Type: Spontaneous
  Country: US (occurrence: US)
  Receive Date: 20220323
  Receipt Date: 20220323
  Transmission Date: 20220423
  Serious: Yes (Other)
  Sender: FDA-Public Use
  Company Number: US-ALLERGAN-2209100US

PATIENT
  Sex: Female

DRUGS (1)
  1. ESCITALOPRAM OXALATE [Suspect]
     Active Substance: ESCITALOPRAM OXALATE
     Indication: Product used for unknown indication
     Dosage: 10 MG, QD
     Route: 048

REACTIONS (6)
  - Cataract [Unknown]
  - Eye haemorrhage [Unknown]
  - Choking [Unknown]
  - Abdominal discomfort [Unknown]
  - Dizziness [Unknown]
  - Depression [Unknown]
